FAERS Safety Report 25264959 (Version 1)
Quarter: 2025Q2

REPORT INFORMATION
  Report Type: Spontaneous
  Country: US (occurrence: US)
  Receive Date: 20250502
  Receipt Date: 20250502
  Transmission Date: 20250717
  Serious: Yes (Hospitalization, Other)
  Sender: ABBVIE
  Company Number: US-ABBVIE-6260078

PATIENT
  Age: 32 Year
  Sex: Male

DRUGS (22)
  1. DEPAKOTE [Suspect]
     Active Substance: DIVALPROEX SODIUM
     Indication: Product used for unknown indication
     Route: 048
  2. INGREZZA [Suspect]
     Active Substance: VALBENAZINE DITOSYLATE
     Indication: Dyskinesia
     Route: 048
     Dates: start: 20170509, end: 20170515
  3. INGREZZA [Suspect]
     Active Substance: VALBENAZINE DITOSYLATE
     Indication: Dyskinesia
     Route: 048
     Dates: start: 20171120
  4. INGREZZA [Suspect]
     Active Substance: VALBENAZINE DITOSYLATE
     Indication: Dyskinesia
     Route: 048
     Dates: start: 2016
  5. INGREZZA [Suspect]
     Active Substance: VALBENAZINE DITOSYLATE
     Indication: Dyskinesia
     Route: 048
     Dates: start: 20170516, end: 20171119
  6. SODIUM CHLORIDE [Concomitant]
     Active Substance: SODIUM CHLORIDE
     Indication: Product used for unknown indication
  7. HYDROXYZINE [Concomitant]
     Active Substance: HYDROXYZINE HYDROCHLORIDE
     Indication: Product used for unknown indication
  8. BENZTROPINE [Concomitant]
     Active Substance: BENZTROPINE
     Indication: Product used for unknown indication
  9. OLANZAPINE [Concomitant]
     Active Substance: OLANZAPINE
     Indication: Product used for unknown indication
  10. CLARITIN [Concomitant]
     Active Substance: LORATADINE
     Indication: Product used for unknown indication
  11. LEXAPRO [Concomitant]
     Active Substance: ESCITALOPRAM OXALATE
     Indication: Product used for unknown indication
  12. JARDIANCE [Concomitant]
     Active Substance: EMPAGLIFLOZIN
     Indication: Product used for unknown indication
  13. OMEPRAZOLE [Concomitant]
     Active Substance: OMEPRAZOLE
     Indication: Product used for unknown indication
  14. PANTOPRAZOLE [Concomitant]
     Active Substance: PANTOPRAZOLE
     Indication: Product used for unknown indication
  15. FLONASE [Concomitant]
     Active Substance: FLUTICASONE PROPIONATE
     Indication: Product used for unknown indication
  16. EXCEDRIN [Concomitant]
     Active Substance: ACETAMINOPHEN\ASPIRIN\CAFFEINE
     Indication: Product used for unknown indication
  17. DOCUSATE [Concomitant]
     Active Substance: DOCUSATE
     Indication: Product used for unknown indication
  18. CAPLYTA [Concomitant]
     Active Substance: LUMATEPERONE
     Indication: Product used for unknown indication
  19. LYBALVI [Concomitant]
     Active Substance: OLANZAPINE\SAMIDORPHAN L-MALATE
     Indication: Product used for unknown indication
  20. DUPIXENT [Concomitant]
     Active Substance: DUPILUMAB
     Indication: Product used for unknown indication
  21. Trospium;Xanomeline [Concomitant]
     Indication: Product used for unknown indication
  22. PROPRANOLOL [Concomitant]
     Active Substance: PROPRANOLOL HYDROCHLORIDE
     Indication: Product used for unknown indication

REACTIONS (40)
  - Suicide attempt [Unknown]
  - Suicidal ideation [Recovered/Resolved]
  - Impulsive behaviour [Unknown]
  - Victim of sexual abuse [Unknown]
  - Thermal burn [Unknown]
  - Corneal abrasion [Recovered/Resolved]
  - Hypersomnia [Recovered/Resolved]
  - Coma [Unknown]
  - Weight decreased [Unknown]
  - Muscle atrophy [Unknown]
  - Exposure to fungus [Unknown]
  - Migraine [Unknown]
  - Upper limb fracture [Unknown]
  - Fall [Unknown]
  - Tinnitus [Unknown]
  - Dehydration [Unknown]
  - Oesophageal ulcer [Unknown]
  - Oesophageal injury [Unknown]
  - Fractured coccyx [Unknown]
  - Gastrooesophageal reflux disease [Unknown]
  - Oesophageal haemorrhage [Unknown]
  - Gastric ulcer [Unknown]
  - Haematemesis [Unknown]
  - Pneumothorax [Unknown]
  - Acute oesophageal mucosal lesion [Unknown]
  - Allergic cough [Unknown]
  - Scoliosis [Unknown]
  - Seasonal allergy [Unknown]
  - Gastrointestinal disorder [Unknown]
  - Hypotension [Unknown]
  - Psychotic disorder [Recovered/Resolved]
  - Overdose [Unknown]
  - Feeling abnormal [Recovered/Resolved]
  - Aphasia [Recovered/Resolved]
  - Intentional self-injury [Unknown]
  - Hospitalisation [Unknown]
  - Adverse drug reaction [Unknown]
  - Psychotic disorder [Recovered/Resolved]
  - Psychotic disorder [Unknown]
  - Hallucination, auditory [Unknown]

NARRATIVE: CASE EVENT DATE: 20170801
